FAERS Safety Report 18512293 (Version 3)
Quarter: 2020Q4

REPORT INFORMATION
  Report Type: Spontaneous
  Country: US (occurrence: US)
  Receive Date: 20201117
  Receipt Date: 20201124
  Transmission Date: 20210114
  Serious: Yes (Hospitalization, Other)
  Sender: FDA-Public Use
  Company Number: US-PFIZER INC-2020447883

PATIENT
  Age: 25 Year
  Sex: Female

DRUGS (1)
  1. EPINEPHRINE/LIDOCAINE HYDROCHLORIDE [Suspect]
     Active Substance: EPINEPHRINE\LIDOCAINE HYDROCHLORIDE
     Indication: EPIDURAL TEST DOSE
     Dosage: 2 ML

REACTIONS (6)
  - Maternal exposure during pregnancy [Unknown]
  - Blood pressure decreased [Unknown]
  - Unresponsive to stimuli [Unknown]
  - Hypoaesthesia [Unknown]
  - Cyanosis [Unknown]
  - Anaesthetic complication [Unknown]
